FAERS Safety Report 5514997-X (Version None)
Quarter: 2007Q4

REPORT INFORMATION
  Report Type: 
  Country: None (occurrence: None)
  Receive Date: 20071113
  Receipt Date: 20061108
  Transmission Date: 20080405
  Serious: No
  Sender: FDA-Public Use
  Company Number: A0626724A

PATIENT
  Age: 88 Year
  Sex: Female

DRUGS (7)
  1. COREG [Suspect]
     Indication: AORTIC DISORDER
     Dosage: 6.25MG TWICE PER DAY
     Route: 048
     Dates: start: 20060801
  2. ACTONEL [Concomitant]
  3. TIKOSYN [Concomitant]
  4. METOLAZONE [Concomitant]
  5. PROTONIX [Concomitant]
  6. LANOXIN [Concomitant]
  7. ALLOPURINOL [Concomitant]

REACTIONS (3)
  - ANOREXIA [None]
  - DIZZINESS [None]
  - OVERDOSE [None]
